APPROVED DRUG PRODUCT: LEFLUNOMIDE
Active Ingredient: LEFLUNOMIDE
Strength: 10MG
Dosage Form/Route: TABLET;ORAL
Application: A091369 | Product #001 | TE Code: AB
Applicant: ALEMBIC PHARMACEUTICALS LTD
Approved: Nov 21, 2011 | RLD: No | RS: No | Type: RX